FAERS Safety Report 8342735-4 (Version None)
Quarter: 2012Q2

REPORT INFORMATION
  Report Type: 
  Country: None (occurrence: None)
  Receive Date: 20120503
  Receipt Date: 20120419
  Transmission Date: 20120825
  Serious: Yes (Hospitalization)
  Sender: FDA-Public Use
  Company Number: NSR_00537_2012

PATIENT
  Age: 56 Year
  Sex: Male

DRUGS (4)
  1. LAMOTRIGINE [Suspect]
     Indication: POST-TRAUMATIC EPILEPSY
     Dosage: (DF), (200MG TID ORAL)
     Route: 048
  2. METHADONE HCL [Concomitant]
  3. CLONAZEPAM [Concomitant]
  4. BENZODIAZEPINE RELATED DRUGS [Concomitant]

REACTIONS (23)
  - INCOHERENT [None]
  - AGITATION [None]
  - BLOOD GLUCOSE INCREASED [None]
  - MUSCLE RIGIDITY [None]
  - CONFUSIONAL STATE [None]
  - NASAL DISCOMFORT [None]
  - TREMOR [None]
  - FACIAL BONES FRACTURE [None]
  - FACE INJURY [None]
  - SEROTONIN SYNDROME [None]
  - ALANINE AMINOTRANSFERASE INCREASED [None]
  - BLOOD ALKALINE PHOSPHATASE INCREASED [None]
  - TOXICITY TO VARIOUS AGENTS [None]
  - GRAND MAL CONVULSION [None]
  - PARKINSONISM [None]
  - ASPARTATE AMINOTRANSFERASE INCREASED [None]
  - DRUG SCREEN POSITIVE [None]
  - MUSCLE SPASTICITY [None]
  - MENTAL STATUS CHANGES [None]
  - BLOOD PRESSURE INCREASED [None]
  - LACERATION [None]
  - HYPERREFLEXIA [None]
  - INTERNATIONAL NORMALISED RATIO DECREASED [None]
